FAERS Safety Report 4523231-9 (Version None)
Quarter: 2004Q4

REPORT INFORMATION
  Report Type: 
  Country: None (occurrence: None)
  Receive Date: 20041208
  Receipt Date: 20041202
  Transmission Date: 20050328
  Serious: Yes (Hospitalization)
  Sender: FDA-Public Use
  Company Number: 2004CG02432

PATIENT
  Age: 78 Year
  Sex: Male
  Weight: 71 kg

DRUGS (6)
  1. NEXIUM [Suspect]
     Dates: start: 20040922, end: 20040928
  2. ZESTRIL [Suspect]
     Dates: start: 20040921, end: 20040928
  3. EQUANIL [Suspect]
     Dates: start: 20040916, end: 20040926
  4. RISPERDAL [Suspect]
     Dates: start: 20040922, end: 20040928
  5. KARDEGIC /FRA/ [Suspect]
     Dates: start: 20040921, end: 20040928
  6. LOVENOX [Suspect]
     Dates: start: 20040921, end: 20040928

REACTIONS (2)
  - RENAL FAILURE ACUTE [None]
  - RHABDOMYOLYSIS [None]
